FAERS Safety Report 4680209-2 (Version None)
Quarter: 2005Q2

REPORT INFORMATION
  Report Type: 
  Country: None (occurrence: None)
  Receive Date: 20050531
  Receipt Date: 20050303
  Transmission Date: 20051028
  Serious: Yes (Death, Hospitalization, Disabling)
  Sender: FDA-Public Use
  Company Number: NL-2004-034428

PATIENT
  Age: 61 Year
  Weight: 98 kg

DRUGS (3)
  1. QUADRAMET [Suspect]
     Dosage: 18.5 MBQ
     Dates: start: 20040907, end: 20040907
  2. QUADRAMET [Suspect]
     Dosage: 18.5 MBQ
     Dates: start: 20040921, end: 20040921
  3. ANALGESICS [Concomitant]

REACTIONS (13)
  - BACK PAIN [None]
  - CONDITION AGGRAVATED [None]
  - DISSEMINATED INTRAVASCULAR COAGULATION [None]
  - DYSPNOEA [None]
  - HAEMOGLOBIN DECREASED [None]
  - HAEMORRHAGE [None]
  - HIP FRACTURE [None]
  - MALIGNANT NEOPLASM PROGRESSION [None]
  - PAIN [None]
  - PAIN IN EXTREMITY [None]
  - PROSTATE CANCER [None]
  - PULMONARY EMBOLISM [None]
  - THROMBOCYTOPENIA [None]
